FAERS Safety Report 4285733-2 (Version None)
Quarter: 2004Q1

REPORT INFORMATION
  Report Type: 
  Country: None (occurrence: None)
  Receive Date: 20040203
  Receipt Date: 20040121
  Transmission Date: 20041129
  Serious: Yes (Hospitalization)
  Sender: FDA-Public Use
  Company Number: 2003IM000582

PATIENT
  Age: 76 Year
  Sex: Male
  Weight: 88.905 kg

DRUGS (13)
  1. ACTIMMUNE [Suspect]
     Indication: INTERSTITIAL LUNG DISEASE
     Dosage: 200 UG;TIW; SUBCUTANEOUS
     Route: 058
     Dates: start: 20021022, end: 20030524
  2. LIPITOR [Concomitant]
  3. ATENOLOL [Concomitant]
  4. VITAMIN B6 [Concomitant]
  5. ZYRTEC [Concomitant]
  6. PREDNISONE [Concomitant]
  7. ULTRAM [Concomitant]
  8. PROTONIX [Concomitant]
  9. LEVOXYL [Concomitant]
  10. IRON SULFATETHIAMIN COMPOUND TAB [Concomitant]
  11. HYDROCHLOROTHIAZIDE [Concomitant]
  12. POTASSIUM CHLORIDE [Concomitant]
  13. MULTI-VITAMINS [Concomitant]

REACTIONS (2)
  - CONFUSIONAL STATE [None]
  - PNEUMONIA [None]
